FAERS Safety Report 9237916 (Version 3)
Quarter: 2013Q2

REPORT INFORMATION
  Report Type: Spontaneous
  Country: HR (occurrence: None)
  Receive Date: 20130415
  Receipt Date: 20130520
  Transmission Date: 20140414
  Serious: Yes (Hospitalization)
  Sender: FDA-Public Use
  Company Number: 7203298

PATIENT
  Age: 48 Year
  Sex: Female

DRUGS (4)
  1. EUTHYROX [Suspect]
     Indication: HORMONE REPLACEMENT THERAPY
     Dosage: 3 DAYS 1X100 MC-
     Route: 048
     Dates: end: 200801
  2. ANDOL [Suspect]
     Indication: ANTICOAGULANT THERAPY
     Dosage: (300) ORAL
  3. TEGRETOL (CARBAMAZEPINE) UNKNOWN [Concomitant]
  4. CONCOR COR (BISOPROLOL FUMARATE) [Concomitant]

REACTIONS (10)
  - Electrocardiogram abnormal [None]
  - Hypertension [None]
  - Nephritis [None]
  - Tachycardia [None]
  - Contusion [None]
  - Platelet count increased [None]
  - Blood thyroid stimulating hormone decreased [None]
  - Erythema [None]
  - Angina pectoris [None]
  - Nervousness [None]
